FAERS Safety Report 12667788 (Version 6)
Quarter: 2016Q4

REPORT INFORMATION
  Report Type: Report from Study
  Country: None (occurrence: FR)
  Receive Date: 20160819
  Receipt Date: 20161026
  Transmission Date: 20170207
  Serious: Yes (Death, Hospitalization)
  Sender: FDA-Public Use
  Company Number: FR-ABBVIE-16P-056-1699651-00

PATIENT
  Age: 73 Year
  Sex: Male

DRUGS (9)
  1. ACULAR 0.5% EYEWASH [Concomitant]
     Indication: UVEITIS
     Route: 047
     Dates: start: 2008
  2. VENETOCLAX [Suspect]
     Active Substance: VENETOCLAX
     Route: 048
     Dates: start: 20160625, end: 20160626
  3. OFLOXACINE [Concomitant]
     Active Substance: OFLOXACIN
     Indication: PYREXIA
     Route: 048
     Dates: start: 20160725, end: 201608
  4. VENETOCLAX [Suspect]
     Active Substance: VENETOCLAX
     Indication: ACUTE MYELOID LEUKAEMIA
     Route: 048
     Dates: start: 20160623, end: 20160624
  5. VENETOCLAX [Suspect]
     Active Substance: VENETOCLAX
     Route: 048
     Dates: start: 20160624, end: 20160625
  6. AZACITIDINE. [Suspect]
     Active Substance: AZACITIDINE
     Indication: ACUTE MYELOID LEUKAEMIA
     Dosage: DAY 1 THROUGH DAY 7 OF 28 DAY CYCLE
     Route: 058
     Dates: start: 20160623, end: 20160731
  7. CHIBRO-CADRON [Concomitant]
     Active Substance: DEXAMETHASONE\NEOMYCIN SULFATE
     Indication: UVEITIS
     Route: 047
     Dates: start: 2008
  8. VENETOCLAX [Suspect]
     Active Substance: VENETOCLAX
     Route: 048
     Dates: start: 20160626, end: 20160822
  9. CEFUROXIME. [Concomitant]
     Active Substance: CEFUROXIME
     Indication: PYREXIA
     Route: 048
     Dates: start: 20160725, end: 201608

REACTIONS (3)
  - Pseudomonal sepsis [Recovered/Resolved]
  - Pseudomonal sepsis [Recovered/Resolved]
  - Pseudomonal sepsis [Fatal]

NARRATIVE: CASE EVENT DATE: 20160811
